FAERS Safety Report 7623093-7 (Version None)
Quarter: 2011Q3

REPORT INFORMATION
  Report Type: 
  Country: None (occurrence: None)
  Receive Date: 20110720
  Receipt Date: 20110715
  Transmission Date: 20111222
  Serious: Yes (Hospitalization, Other)
  Sender: FDA-Public Use
  Company Number: US-PFIZER INC-2011160990

PATIENT
  Sex: Female
  Weight: 86.168 kg

DRUGS (9)
  1. LIPITOR [Concomitant]
     Dosage: 10 MG, UNK
  2. METFORMIN [Concomitant]
     Dosage: 500 MG, UNK
  3. ECONAZOLE [Concomitant]
     Dosage: 1%
  4. SUTENT [Suspect]
     Dosage: 12.5+25 MG DAILY
     Route: 048
     Dates: start: 20110101
  5. GLIPIZIDE [Concomitant]
     Dosage: 5 MG, UNK
  6. WARFARIN [Concomitant]
     Dosage: 1 MG, UNK
  7. LISINOPRIL [Concomitant]
     Dosage: 5 MG, UNK
  8. HYDROCORT [Concomitant]
     Dosage: 0.5%
  9. ONDANSETRON [Concomitant]
     Dosage: 4 MG, UNK

REACTIONS (3)
  - ALOPECIA [None]
  - THROMBOSIS [None]
  - PNEUMONIA [None]
